FAERS Safety Report 17152838 (Version 1)
Quarter: 2019Q4

REPORT INFORMATION
  Report Type: Spontaneous
  Country: FR (occurrence: FR)
  Receive Date: 20191213
  Receipt Date: 20191213
  Transmission Date: 20200122
  Serious: Yes (Hospitalization)
  Sender: FDA-Public Use
  Company Number: FR-US-PROVELL PHARMACEUTICALS LLC-9134122

PATIENT
  Age: 70 Year
  Sex: Female
  Weight: 90 kg

DRUGS (13)
  1. DOLIPRANE [Concomitant]
     Active Substance: ACETAMINOPHEN
     Indication: PRODUCT USED FOR UNKNOWN INDICATION
     Dosage: 1 G AS NEEDED
  2. LYRICA [Concomitant]
     Active Substance: PREGABALIN
     Indication: PRODUCT USED FOR UNKNOWN INDICATION
     Dosage: A NEUROLEPTIC DRUG
  3. MIANSERINE [Concomitant]
     Active Substance: MIANSERIN HYDROCHLORIDE
     Dosage: INCREASED TO 1 TABLET IN MORNING AND EVENING, FORM STRENGTH: 10 (UNIT UNSPECIFIED)
  4. IMOVANE [Concomitant]
     Active Substance: ZOPICLONE
     Indication: PRODUCT USED FOR UNKNOWN INDICATION
     Dosage: UNIT DOSE: 7.5 (UNIT UNSPECIFIED)
  5. LEVOTHYROX NF [Suspect]
     Active Substance: LEVOTHYROXINE SODIUM
     Indication: HYPOTHYROIDISM
     Dates: start: 2017
  6. MIANSERINE [Concomitant]
     Active Substance: MIANSERIN HYDROCHLORIDE
     Indication: PRODUCT USED FOR UNKNOWN INDICATION
     Dosage: UNKNOWN DOSE
  7. LEVOTHYROX NF [Suspect]
     Active Substance: LEVOTHYROXINE SODIUM
  8. MIANSERINE [Concomitant]
     Active Substance: MIANSERIN HYDROCHLORIDE
     Dosage: FORM STRENGTH: 10 (UNIT UNSPECIFIED)
  9. FORLAX [Concomitant]
     Active Substance: POLYETHYLENE GLYCOL 4000
     Indication: PRODUCT USED FOR UNKNOWN INDICATION
  10. SEROPLEX [Concomitant]
     Active Substance: ESCITALOPRAM OXALATE
     Indication: PRODUCT USED FOR UNKNOWN INDICATION
  11. LEVOTHYROX NF [Suspect]
     Active Substance: LEVOTHYROXINE SODIUM
  12. LYRICA [Concomitant]
     Active Substance: PREGABALIN
     Dosage: FORM STRENGTH: LYRICA 50 (UNIT UNSPECIFIED)
  13. LYRICA [Concomitant]
     Active Substance: PREGABALIN

REACTIONS (9)
  - Vitamin D deficiency [Unknown]
  - Alopecia [Recovered/Resolved]
  - Hyperthyroidism [Unknown]
  - Fall [Unknown]
  - Myalgia [Recovered/Resolved]
  - Depression [Unknown]
  - Vitamin B12 deficiency [Unknown]
  - General physical health deterioration [Unknown]
  - Weight increased [Recovered/Resolved]

NARRATIVE: CASE EVENT DATE: 2017
